FAERS Safety Report 19804077 (Version 3)
Quarter: 2022Q4

REPORT INFORMATION
  Report Type: Report from Study
  Country: US (occurrence: US)
  Receive Date: 20210908
  Receipt Date: 20221028
  Transmission Date: 20230112
  Serious: Yes (Hospitalization, Other)
  Sender: FDA-Public Use
  Company Number: US-GILEAD-2021-0546917

PATIENT
  Age: 82 Year
  Sex: Female
  Weight: 59 kg

DRUGS (5)
  1. AMBRISENTAN [Suspect]
     Active Substance: AMBRISENTAN
     Indication: Product used for unknown indication
     Dosage: UNK
     Route: 065
     Dates: end: 202108
  2. TYVASO [Suspect]
     Active Substance: TREPROSTINIL
     Indication: Pulmonary arterial hypertension
     Dosage: 18 UG, QID
     Route: 055
     Dates: start: 20210805, end: 202108
  3. TYVASO [Suspect]
     Active Substance: TREPROSTINIL
     Dosage: 12 UG, QID
     Route: 055
     Dates: start: 202108
  4. TYVASO [Suspect]
     Active Substance: TREPROSTINIL
     Dosage: 60-120 UG, QID
     Route: 055
     Dates: start: 202108
  5. TYVASO [Suspect]
     Active Substance: TREPROSTINIL
     Dosage: 18-54 UG, QID
     Route: 055
     Dates: start: 20210804

REACTIONS (6)
  - Pulmonary hypertension [Unknown]
  - Dyspnoea [Unknown]
  - Nausea [Unknown]
  - Headache [Unknown]
  - Faeces soft [Unknown]
  - Dry mouth [Unknown]

NARRATIVE: CASE EVENT DATE: 20210801
